FAERS Safety Report 6872242-7 (Version None)
Quarter: 2010Q3

REPORT INFORMATION
  Report Type: 
  Country: None (occurrence: None)
  Receive Date: 20100723
  Receipt Date: 20100712
  Transmission Date: 20110219
  Serious: Yes (Hospitalization, Other)
  Sender: FDA-Public Use
  Company Number: US-ELI_LILLY_AND_COMPANY-US201007003671

PATIENT
  Sex: Female

DRUGS (2)
  1. FORTEO [Suspect]
     Dosage: 20 UG, DAILY (1/D)
  2. CALCIUM WITH VITAMIN D [Concomitant]
     Dosage: 60 MG, DAILY (1/D)

REACTIONS (2)
  - FALL [None]
  - HIP FRACTURE [None]
